FAERS Safety Report 21313808 (Version 1)
Quarter: 2022Q3

REPORT INFORMATION
  Report Type: Spontaneous
  Country: US (occurrence: US)
  Receive Date: 20220909
  Receipt Date: 20220909
  Transmission Date: 20221027
  Serious: Yes (Hospitalization)
  Sender: FDA-Public Use
  Company Number: US-MYLANLABS-2022M1092165

PATIENT
  Age: 17 Year
  Sex: Female

DRUGS (9)
  1. TACROLIMUS [Suspect]
     Active Substance: TACROLIMUS
     Indication: Immunosuppressant drug therapy
     Dosage: UNK
     Route: 065
  2. MYCOPHENOLATE MOFETIL [Suspect]
     Active Substance: MYCOPHENOLATE MOFETIL
     Indication: Immunosuppressant drug therapy
     Dosage: UNK
     Route: 065
  3. LIDOCAINE [Suspect]
     Active Substance: LIDOCAINE
     Indication: BK virus infection
     Dosage: 80 MILLIGRAM, QW, ADMINISTERED AFTER BEING BUFFERED WITH 2 MEQ OF BICARBONATE
     Route: 043
  4. LIDOCAINE [Suspect]
     Active Substance: LIDOCAINE
     Indication: Viral haemorrhagic cystitis
  5. LIDOCAINE [Suspect]
     Active Substance: LIDOCAINE
     Indication: Bladder pain
  6. FLUDARABINE [Suspect]
     Active Substance: FLUDARABINE PHOSPHATE
     Indication: Bone marrow conditioning regimen
     Dosage: UNK
     Route: 065
  7. HYDROCORTISONE [Suspect]
     Active Substance: HYDROCORTISONE
     Indication: BK virus infection
     Dosage: 100 MILLIGRAM, QW
     Route: 043
  8. HYDROCORTISONE [Suspect]
     Active Substance: HYDROCORTISONE
     Indication: Viral haemorrhagic cystitis
  9. ALEMTUZUMAB [Suspect]
     Active Substance: ALEMTUZUMAB
     Indication: Bone marrow conditioning regimen
     Dosage: UNK
     Route: 065

REACTIONS (4)
  - BK virus infection [Recovering/Resolving]
  - Viral haemorrhagic cystitis [Recovering/Resolving]
  - Therapy non-responder [Unknown]
  - Off label use [Unknown]
